FAERS Safety Report 11787125 (Version 2)
Quarter: 2015Q4

REPORT INFORMATION
  Report Type: Spontaneous
  Country: US (occurrence: US)
  Receive Date: 20151130
  Receipt Date: 20151201
  Transmission Date: 20160305
  Serious: Yes (Hospitalization)
  Sender: FDA-Public Use
  Company Number: US-SA-2015SA192652

PATIENT
  Age: 75 Year
  Sex: Female

DRUGS (1)
  1. PLAVIX [Suspect]
     Active Substance: CLOPIDOGREL BISULFATE
     Indication: CARDIAC FAILURE CONGESTIVE
     Route: 048
     Dates: start: 2011

REACTIONS (9)
  - Hip fracture [Unknown]
  - Fall [Unknown]
  - Rib fracture [Unknown]
  - Musculoskeletal stiffness [Unknown]
  - Loss of consciousness [Unknown]
  - Head injury [Unknown]
  - Paralysis [Unknown]
  - Amnesia [Unknown]
  - Tremor [Unknown]

NARRATIVE: CASE EVENT DATE: 20150129
